FAERS Safety Report 7533574-2 (Version None)
Quarter: 2011Q2

REPORT INFORMATION
  Report Type: 
  Country: None (occurrence: None)
  Receive Date: 20110608
  Receipt Date: 20060118
  Transmission Date: 20111010
  Serious: Yes (Hospitalization)
  Sender: FDA-Public Use
  Company Number: PHFR2006GB00599

PATIENT
  Sex: Female

DRUGS (1)
  1. CLOZAPINE [Suspect]
     Indication: SCHIZOPHRENIA
     Route: 048
     Dates: start: 19961217

REACTIONS (10)
  - HAEMATEMESIS [None]
  - DEHYDRATION [None]
  - DYSPNOEA [None]
  - FALL [None]
  - ANAEMIA [None]
  - HAEMOGLOBIN DECREASED [None]
  - PULMONARY EMBOLISM [None]
  - VOMITING [None]
  - ANKLE FRACTURE [None]
  - WHITE BLOOD CELL COUNT INCREASED [None]
